FAERS Safety Report 8530825-2 (Version None)
Quarter: 2012Q3

REPORT INFORMATION
  Report Type: 
  Country: None (occurrence: None)
  Receive Date: 20120723
  Receipt Date: 20120716
  Transmission Date: 20120928
  Serious: Yes (Death, Hospitalization, Other)
  Sender: FDA-Public Use
  Company Number: ES-PFIZER INC-ES-WYE-H08483809

PATIENT
  Age: 58 Year
  Sex: Male

DRUGS (5)
  1. PIPERACILLIN AND TAZOBACTAM [Interacting]
     Indication: EVIDENCE BASED TREATMENT
     Dosage: 4 G/500MG EVERY 6 HR
     Route: 042
  2. PIPERACILLIN AND TAZOBACTAM [Interacting]
     Indication: PYREXIA
  3. METHOTREXATE SODIUM [Interacting]
  4. METHOTREXATE SODIUM [Suspect]
     Indication: CENTRAL NERVOUS SYSTEM LYMPHOMA
     Dosage: 2.5 G/M2, 1X/3 HR
     Route: 042
  5. LEUCOVORIN CALCIUM [Concomitant]
     Route: 042

REACTIONS (6)
  - BONE MARROW FAILURE [None]
  - SEPSIS [None]
  - RENAL FAILURE ACUTE [None]
  - DRUG INTERACTION [None]
  - MUCOSAL INFLAMMATION [None]
  - PYREXIA [None]
